FAERS Safety Report 7471797-1 (Version None)
Quarter: 2011Q2

REPORT INFORMATION
  Report Type: 
  Country: None (occurrence: None)
  Receive Date: 20110511
  Receipt Date: 20100506
  Transmission Date: 20111010
  Serious: No
  Sender: FDA-Public Use
  Company Number: A0859809A

PATIENT
  Sex: Female

DRUGS (4)
  1. TYKERB [Suspect]
     Dosage: 1250MGD PER DAY
     Route: 048
     Dates: start: 20100101
  2. NAVELBINE [Suspect]
     Route: 065
  3. ZOMETA [Suspect]
     Route: 065
  4. HERCEPTIN [Suspect]
     Route: 065

REACTIONS (2)
  - RASH [None]
  - ADVERSE DRUG REACTION [None]
